FAERS Safety Report 10290039 (Version 2)
Quarter: 2014Q1

REPORT INFORMATION
  Report Type: Spontaneous
  Country: US (occurrence: None)
  Receive Date: 20120817
  Receipt Date: 20130815
  Transmission Date: 20141002
  Serious: Yes (Other)
  Sender: FDA-Public Use
  Company Number: ADR-2012-00838

PATIENT
  Sex: Female

DRUGS (3)
  1. BACLOFEN [Suspect]
     Indication: MUSCLE SPASTICITY
  2. BACLOFEN [Suspect]
     Indication: HEAD INJURY
  3. BACLOFEN [Suspect]
     Indication: BRAIN INJURY

REACTIONS (3)
  - Infection [None]
  - Staphylococcal infection [None]
  - Implant site erosion [None]
